FAERS Safety Report 4586629-9 (Version None)
Quarter: 2005Q1

REPORT INFORMATION
  Report Type: 
  Country: None (occurrence: None)
  Receive Date: 20050218
  Receipt Date: 20040805
  Transmission Date: 20050727
  Serious: No
  Sender: FDA-Public Use
  Company Number: US-BRISTOL-MYERS SQUIBB COMPANY-12662060

PATIENT
  Sex: Female

DRUGS (6)
  1. TAXOL [Suspect]
     Indication: BREAST CANCER
     Dosage: IN 250 CC OF N.S. ADDITIONAL EXPIRATION DATE: 12/2006
     Route: 042
     Dates: start: 20040730, end: 20040730
  2. CARBOPLATIN [Concomitant]
     Dates: start: 20040730, end: 20040730
  3. DECADRON [Concomitant]
     Indication: PREMEDICATION
     Route: 042
     Dates: start: 20040730, end: 20040730
  4. KYTRIL [Concomitant]
     Indication: PREMEDICATION
     Route: 042
     Dates: start: 20040730, end: 20040730
  5. BENADRYL [Concomitant]
     Indication: PREMEDICATION
     Route: 042
     Dates: start: 20040730, end: 20040730
  6. ZANTAC [Concomitant]
     Indication: PREMEDICATION
     Route: 042
     Dates: start: 20040730, end: 20040730

REACTIONS (1)
  - HEADACHE [None]
